FAERS Safety Report 6358181-9 (Version None)
Quarter: 2009Q3

REPORT INFORMATION
  Report Type: 
  Country: None (occurrence: None)
  Receive Date: 20090916
  Receipt Date: 20090911
  Transmission Date: 20100115
  Serious: Yes (Death, Other)
  Sender: FDA-Public Use
  Company Number: TR-ELI_LILLY_AND_COMPANY-TR200909002574

PATIENT
  Age: 68 Year
  Sex: Female

DRUGS (6)
  1. HUMALOG MIX 50/50 [Suspect]
     Indication: DIABETES MELLITUS
     Dosage: 12 IU, EACH MORNING
     Dates: start: 20090401, end: 20090901
  2. HUMALOG MIX 50/50 [Suspect]
     Dosage: 12 IU, DAILY (1/D)
     Dates: start: 20090401, end: 20090901
  3. HUMALOG MIX 50/50 [Suspect]
     Dosage: 14 IU, EACH EVENING
     Dates: start: 20090401, end: 20090901
  4. DIOVAN HCT [Concomitant]
     Indication: HYPERTENSION
     Dosage: 1 D/F, DAILY (1/D)
     Dates: start: 19860101, end: 20090901
  5. METOPROLOL TARTRATE [Concomitant]
     Indication: HYPERTENSION
     Dosage: 50 MG, DAILY (1/D)
     Dates: start: 20060101, end: 20090901
  6. CALCIUM [Concomitant]
     Indication: OSTEOPOROSIS
     Dosage: UNK, DAILY (1/D)
     Dates: start: 19890101, end: 20090901

REACTIONS (1)
  - NEOPLASM MALIGNANT [None]
